FAERS Safety Report 24601000 (Version 1)
Quarter: 2024Q4

REPORT INFORMATION
  Report Type: Spontaneous
  Country: FR (occurrence: FR)
  Receive Date: 20241110
  Receipt Date: 20241110
  Transmission Date: 20250115
  Serious: Yes (Hospitalization)
  Sender: ORGANON
  Company Number: None

PATIENT
  Age: 36 Year
  Sex: Female
  Weight: 68 kg

DRUGS (5)
  1. ORGALUTRAN [Suspect]
     Active Substance: GANIRELIX ACETATE
     Indication: Assisted fertilisation
     Dosage: SOLUTION INJECTABLE
     Dates: start: 20240228, end: 20240301
  2. ORGALUTRAN [Suspect]
     Active Substance: GANIRELIX ACETATE
     Dosage: 0.25 MILLIGRAM, QD
     Dates: start: 20240522, end: 20240525
  3. ETHINYL ESTRADIOL\LEVONORGESTREL [Suspect]
     Active Substance: ETHINYL ESTRADIOL\LEVONORGESTREL
     Indication: Assisted fertilisation
     Dosage: 1 DOSAGE FORM, QD
     Dates: start: 20240805, end: 20240814
  4. MENOPUR [Suspect]
     Active Substance: FOLLITROPIN\LUTEINIZING HORMONE
     Indication: Assisted fertilisation
     Dosage: SOLUTION FOR INJECTION IN A PRE-FILLED PEN
     Dates: start: 20240223, end: 20240301
  5. FOLLITROPIN\LUTEINIZING HORMONE [Suspect]
     Active Substance: FOLLITROPIN\LUTEINIZING HORMONE
     Indication: Assisted fertilisation
     Dosage: POWDER AND SOLVENT FOR SOLUTION FOR INJECTION
     Dates: start: 20240518, end: 20240525

REACTIONS (1)
  - Cerebral venous thrombosis [Recovering/Resolving]

NARRATIVE: CASE EVENT DATE: 20240823
